FAERS Safety Report 17679327 (Version 1)
Quarter: 2020Q2

REPORT INFORMATION
  Report Type: Spontaneous
  Country: US (occurrence: US)
  Receive Date: 20200416
  Receipt Date: 20200416
  Transmission Date: 20200714
  Serious: Yes (Other)
  Sender: FDA-Public Use
  Company Number: None

PATIENT
  Sex: Female
  Weight: 58.5 kg

DRUGS (1)
  1. VYVANSE [Suspect]
     Active Substance: LISDEXAMFETAMINE DIMESYLATE
     Indication: ATTENTION DEFICIT HYPERACTIVITY DISORDER
     Dosage: ?          QUANTITY:1 CAPSULE(S);?
     Dates: start: 20200323, end: 20200329

REACTIONS (9)
  - Sinus disorder [None]
  - Hunger [None]
  - Dyspnoea [None]
  - Fatigue [None]
  - Product physical issue [None]
  - Chest pain [None]
  - Feeling abnormal [None]
  - Facial spasm [None]
  - Disturbance in attention [None]
